FAERS Safety Report 23649318 (Version 1)
Quarter: 2024Q1

REPORT INFORMATION
  Report Type: Spontaneous
  Country: AR (occurrence: AR)
  Receive Date: 20240319
  Receipt Date: 20240319
  Transmission Date: 20240410
  Serious: Yes (Hospitalization, Other)
  Sender: FDA-Public Use
  Company Number: AR-009507513-2401ARG006647

PATIENT
  Age: 28 Year
  Sex: Male
  Weight: 90 kg

DRUGS (6)
  1. PREVYMIS [Suspect]
     Active Substance: LETERMOVIR
     Indication: Prophylaxis
     Dosage: 480 MILLIGRAM, QD
     Route: 048
     Dates: start: 20230405
  2. DASATINIB [Suspect]
     Active Substance: DASATINIB
     Indication: Antiviral prophylaxis
     Route: 048
  3. ACYCLOVIR [Suspect]
     Active Substance: ACYCLOVIR
     Indication: Prophylaxis
  4. BACTRIM [Suspect]
     Active Substance: SULFAMETHOXAZOLE\TRIMETHOPRIM
     Indication: Prophylaxis
  5. POSACONAZOLE [Concomitant]
     Active Substance: POSACONAZOLE
     Indication: Prophylaxis
  6. PREDNISOLONE [Concomitant]
     Active Substance: PREDNISOLONE
     Dosage: 40 MILLIGRAM
     Route: 048
     Dates: start: 202306

REACTIONS (10)
  - Acute lymphocytic leukaemia recurrent [Unknown]
  - Graft versus host disease in gastrointestinal tract [Recovered/Resolved]
  - Cytomegalovirus infection reactivation [Recovered/Resolved]
  - Large intestinal ulcer [Recovered/Resolved]
  - Malabsorption [Recovered/Resolved]
  - Cytomegalovirus infection reactivation [Recovered/Resolved]
  - Haematochezia [Recovered/Resolved]
  - Gastrointestinal haemorrhage [Recovered/Resolved]
  - Graft versus host disease in skin [Unknown]
  - Drug interaction [Unknown]

NARRATIVE: CASE EVENT DATE: 20230524
